FAERS Safety Report 5341325-5 (Version None)
Quarter: 2007Q2

REPORT INFORMATION
  Report Type: 
  Country: None (occurrence: None)
  Receive Date: 20070523
  Receipt Date: 20070515
  Transmission Date: 20071010
  Serious: Yes (Other)
  Sender: FDA-Public Use
  Company Number: THYM-11326

PATIENT
  Age: 30 Year
  Sex: Male
  Weight: 78 kg

DRUGS (16)
  1. THYMOGLOBULIN [Suspect]
     Indication: RENAL TRANSPLANT
     Dates: start: 20070123, end: 20070123
  2. THYMOGLOBULIN [Suspect]
     Indication: RENAL TRANSPLANT
     Dosage: 125 MG QD IV
     Route: 042
     Dates: start: 20070127, end: 20070127
  3. THYMOGLOBULIN [Suspect]
     Indication: RENAL TRANSPLANT
     Dosage: 150 MG QD IV
     Route: 042
     Dates: start: 20070202, end: 20070202
  4. CELLCEPT [Concomitant]
  5. PREDNISONE TAB [Concomitant]
  6. TACROLIMUS [Concomitant]
  7. FLAGYL [Concomitant]
  8. IMIPENEM [Concomitant]
  9. SEPTRA [Concomitant]
  10. CIPRO [Concomitant]
  11. NYSTATIN [Concomitant]
  12. ACYCLOVIR [Concomitant]
  13. PENTASPAN [Concomitant]
  14. HYDROCORTISONE [Concomitant]
  15. BENADRYL [Concomitant]
  16. TYLENOL [Concomitant]

REACTIONS (8)
  - BLOOD PRESSURE SYSTOLIC DECREASED [None]
  - COMPLICATIONS OF TRANSPLANTED KIDNEY [None]
  - DIALYSIS [None]
  - RENAL CELL CARCINOMA STAGE UNSPECIFIED [None]
  - SEPSIS [None]
  - SERUM SICKNESS [None]
  - SINUS TACHYCARDIA [None]
  - TREMOR [None]
